FAERS Safety Report 7075364-3 (Version None)
Quarter: 2010Q4

REPORT INFORMATION
  Report Type: 
  Country: None (occurrence: None)
  Receive Date: 20101030
  Receipt Date: 20100922
  Transmission Date: 20110411
  Serious: No
  Sender: FDA-Public Use
  Company Number: US-WYE-H17161610

PATIENT
  Sex: Female
  Weight: 99.88 kg

DRUGS (4)
  1. PRISTIQ [Suspect]
     Indication: DEPRESSION
     Route: 048
     Dates: start: 20100817, end: 20100101
  2. PRISTIQ [Suspect]
     Dosage: DOSE INCREASED PER PHYSICIAN ON FOLLOW UP REPORT
     Dates: start: 20100101
  3. NEXIUM [Concomitant]
  4. LISINOPRIL [Concomitant]

REACTIONS (1)
  - DRUG INEFFECTIVE [None]
